FAERS Safety Report 7533279-8 (Version None)
Quarter: 2011Q2

REPORT INFORMATION
  Report Type: 
  Country: None (occurrence: None)
  Receive Date: 20110608
  Receipt Date: 20100723
  Transmission Date: 20111010
  Serious: Yes (Hospitalization)
  Sender: FDA-Public Use
  Company Number: US-BAYER-201015546NA

PATIENT
  Age: 41 Year
  Sex: Female
  Weight: 81.633 kg

DRUGS (7)
  1. ANTIBIOTICS [Concomitant]
  2. SERTRALINE HYDROCHLORIDE [Concomitant]
     Indication: ANXIETY
     Dosage: 50 MG, UNK
     Dates: start: 20080313, end: 20080501
  3. YAZ [Suspect]
     Indication: CONTRACEPTION
     Dosage: UNK
     Route: 048
     Dates: start: 20070501, end: 20080331
  4. NAPROXEN (ALEVE) [Concomitant]
     Indication: HEADACHE
     Dosage: UNK
     Dates: start: 20080331
  5. LEXAPRO [Concomitant]
     Indication: ACNE
     Dosage: 10 MG, UNK
     Dates: start: 20040101
  6. LEXAPRO [Concomitant]
     Indication: DEPRESSION
  7. PREMESISRX [Concomitant]
     Indication: PREGNANCY
     Dosage: UNK
     Dates: start: 20050401, end: 20060601

REACTIONS (6)
  - HEMIPARESIS [None]
  - ISCHAEMIC STROKE [None]
  - MONOPLEGIA [None]
  - ABASIA [None]
  - CEREBROVASCULAR ACCIDENT [None]
  - APHASIA [None]
